FAERS Safety Report 5082432-4 (Version None)
Quarter: 2006Q3

REPORT INFORMATION
  Report Type: 
  Country: None (occurrence: None)
  Receive Date: 20060817
  Receipt Date: 20060811
  Transmission Date: 20061208
  Serious: Yes (Other)
  Sender: FDA-Public Use
  Company Number: 457722

PATIENT
  Age: 77 Year
  Sex: Male

DRUGS (1)
  1. ARTIST [Suspect]
     Indication: DRUG USE FOR UNKNOWN INDICATION
     Route: 048
     Dates: start: 20050415, end: 20050515

REACTIONS (1)
  - DRUG ERUPTION [None]
